FAERS Safety Report 5234450-0 (Version None)
Quarter: 2007Q1

REPORT INFORMATION
  Report Type: 
  Country: None (occurrence: None)
  Receive Date: 20070209
  Receipt Date: 20070205
  Transmission Date: 20070707
  Serious: Yes (Other)
  Sender: FDA-Public Use
  Company Number: JP-GLAXOSMITHKLINE-B0450303A

PATIENT
  Age: 3 Day
  Sex: Male
  Weight: 3.2 kg

DRUGS (5)
  1. PAXIL [Suspect]
     Indication: SCHIZOPHRENIA
     Dosage: 20MG PER DAY
     Dates: start: 20061018
  2. RIVOTRIL [Concomitant]
     Indication: SCHIZOPHRENIA
     Dosage: .5MG TWICE PER DAY
  3. PROMETHAZINE HCL [Concomitant]
     Dosage: 25MG PER DAY
  4. INOVAN [Concomitant]
     Indication: SHOCK
     Route: 042
     Dates: start: 20061202, end: 20061203
  5. FLUMARIN [Concomitant]
     Indication: MECONIUM STAIN
     Dosage: 300MG PER DAY
     Route: 042
     Dates: start: 20061202, end: 20061205

REACTIONS (15)
  - BLOOD CREATINE PHOSPHOKINASE INCREASED [None]
  - CEREBRAL HAEMORRHAGE NEONATAL [None]
  - CONVULSION [None]
  - CRYING [None]
  - DRUG EXPOSURE DURING PREGNANCY [None]
  - DRUG WITHDRAWAL SYNDROME NEONATAL [None]
  - DYSPHAGIA [None]
  - HYPERTONIA [None]
  - INITIAL INSOMNIA [None]
  - IRRITABILITY [None]
  - MUSCULOSKELETAL STIFFNESS [None]
  - MYOCLONUS [None]
  - NYSTAGMUS [None]
  - OPISTHOTONUS [None]
  - PYREXIA [None]
